FAERS Safety Report 6705971-6 (Version None)
Quarter: 2010Q2

REPORT INFORMATION
  Report Type: 
  Country: None (occurrence: None)
  Receive Date: 20100429
  Receipt Date: 20100416
  Transmission Date: 20101027
  Serious: Yes (Hospitalization)
  Sender: FDA-Public Use
  Company Number: US-1181651

PATIENT
  Age: 60 Year
  Sex: Female
  Weight: 81.6475 kg

DRUGS (6)
  1. OMNIPRED [Suspect]
     Dosage: (BID X 14 DAYS OPHTALMIC), (TID OPHTHALMIC)
     Route: 047
     Dates: start: 20100319
  2. NEVANAC [Suspect]
     Dosage: (BID OPHTHALMIC), (TID OPHTHALMIC)
     Route: 047
     Dates: start: 20100319
  3. VIGAMOX [Suspect]
     Dosage: (OPHTHALMIC)
     Route: 047
     Dates: start: 20100319, end: 20100416
  4. ENTOCORT EC [Concomitant]
  5. PREDNISONE [Concomitant]
  6. TYLENOL-500 [Concomitant]

REACTIONS (4)
  - BLOOD PRESSURE DECREASED [None]
  - EYELID PTOSIS [None]
  - HEADACHE [None]
  - LOSS OF CONSCIOUSNESS [None]
